FAERS Safety Report 20203594 (Version 1)
Quarter: 2021Q4

REPORT INFORMATION
  Report Type: Spontaneous
  Country: CA (occurrence: CA)
  Receive Date: 20211219
  Receipt Date: 20211219
  Transmission Date: 20220303
  Serious: Yes (Death)
  Sender: FDA-Public Use
  Company Number: CA-009507513-2112CAN005429

PATIENT
  Sex: Male

DRUGS (12)
  1. KEYTRUDA [Suspect]
     Active Substance: PEMBROLIZUMAB
  2. CARBOPLATIN [Suspect]
     Active Substance: CARBOPLATIN
     Dosage: FORMULATION: SOLUTION INTRAVENOUS
  3. PACLITAXEL [Suspect]
     Active Substance: PACLITAXEL
     Dosage: FORMULATION: LIQUID INTRAVENOUS
  4. ACETAMINOPHEN [Concomitant]
     Active Substance: ACETAMINOPHEN
  5. ATORVASTATIN CALCIUM [Concomitant]
     Active Substance: ATORVASTATIN CALCIUM
     Route: 048
  6. CALCIUM\MAGNESIUM [Concomitant]
     Active Substance: CALCIUM\MAGNESIUM
  7. VITAMINS [Concomitant]
     Active Substance: VITAMINS
  8. OXYCODONE [Concomitant]
     Active Substance: OXYCODONE
  9. QUETIAPINE [Concomitant]
     Active Substance: QUETIAPINE
  10. QUININE SULFATE [Concomitant]
     Active Substance: QUININE SULFATE
  11. RAMIPRIL [Concomitant]
     Active Substance: RAMIPRIL
  12. ZOPICLONE [Concomitant]
     Active Substance: ZOPICLONE

REACTIONS (2)
  - Somnolence [Fatal]
  - Speech disorder [Fatal]
